FAERS Safety Report 18227743 (Version 1)
Quarter: 2020Q3

REPORT INFORMATION
  Report Type: Spontaneous
  Country: US (occurrence: US)
  Receive Date: 20200903
  Receipt Date: 20200903
  Transmission Date: 20201103
  Serious: Yes (Other)
  Sender: FDA-Public Use
  Company Number: None

PATIENT
  Age: 42 Year
  Sex: Male
  Weight: 101.5 kg

DRUGS (11)
  1. METHYLPREDNISOLONE 40 MG IV TID [Concomitant]
     Dates: start: 20200831
  2. ROBITUSSIN AC 10 ML PO Q8H PRN [Concomitant]
     Dates: start: 20200831
  3. THIAMINE MONONITRATE 100 MG PO DAILY [Concomitant]
     Dates: start: 20200831
  4. FAMOTIDINE 20 MG PO BID [Concomitant]
     Dates: start: 20200831
  5. ACETAMINOPHEN 650 MG PO Q6H PRN [Concomitant]
     Dates: start: 20200831
  6. AZITHROMYCIN 500 MG PO DAILY [Concomitant]
     Dates: start: 20200831
  7. REMDESIVIR. [Suspect]
     Active Substance: REMDESIVIR
     Indication: COVID-19
     Route: 042
     Dates: start: 20200901, end: 20200903
  8. FUROSEMIDE 40 MG IV BID [Concomitant]
     Dates: start: 20200831
  9. ZINC SULFATE 220 MG PO BID [Concomitant]
     Dates: start: 20200831
  10. ASCORBIC ACID 500 MG PO BID [Concomitant]
     Dates: start: 20200831
  11. ENOXAPARIN 40 MG SC DAILY [Concomitant]
     Dates: start: 20200831

REACTIONS (2)
  - Alanine aminotransferase increased [None]
  - Therapy interrupted [None]

NARRATIVE: CASE EVENT DATE: 20200903
